FAERS Safety Report 9132980 (Version 1)
Quarter: 2013Q1

REPORT INFORMATION
  Report Type: Report from Study
  Country: LT (occurrence: LT)
  Receive Date: 20130107
  Receipt Date: 20130107
  Transmission Date: 20140127
  Serious: Yes (Hospitalization)
  Sender: FDA-Public Use
  Company Number: LT-GLAXOSMITHKLINE-A0735884D

PATIENT
  Age: 54 Year
  Sex: Female

DRUGS (7)
  1. OFATUMUMAB [Suspect]
     Indication: CHRONIC LYMPHOCYTIC LEUKAEMIA
     Dosage: 500MG MONTHLY
     Route: 042
     Dates: start: 20080520
  2. FLUDARABINE [Suspect]
     Indication: CHRONIC LYMPHOCYTIC LEUKAEMIA
     Dosage: 42MG MONTHLY
     Route: 042
     Dates: start: 20080521, end: 20080820
  3. CYCLOPHOSPHAMIDE [Suspect]
     Indication: CHRONIC LYMPHOCYTIC LEUKAEMIA
     Dosage: 420MG MONTHLY
     Route: 042
     Dates: start: 20080521, end: 20080820
  4. QUINAPRIL + HYDROCHLOROTHIAZIDE [Concomitant]
     Indication: HYPERTENSION
     Route: 048
     Dates: start: 20100417
  5. METFORMIN [Concomitant]
     Indication: DIABETES MELLITUS
     Route: 048
     Dates: start: 20100415
  6. METOPROLOL [Concomitant]
     Indication: HYPERTENSION
     Route: 048
  7. PAROXETINE [Concomitant]
     Indication: DEPRESSION
     Route: 048
     Dates: start: 20100524

REACTIONS (1)
  - Exostosis [Recovered/Resolved]
